FAERS Safety Report 15573323 (Version 4)
Quarter: 2019Q1

REPORT INFORMATION
  Report Type: Spontaneous
  Country: US (occurrence: US)
  Receive Date: 20181101
  Receipt Date: 20190107
  Transmission Date: 20190417
  Serious: Yes (Hospitalization)
  Sender: FDA-Public Use
  Company Number: US-BIOGEN-2018BI00652642

PATIENT
  Sex: Female

DRUGS (1)
  1. TYSABRI [Suspect]
     Active Substance: NATALIZUMAB
     Indication: MULTIPLE SCLEROSIS
     Route: 042
     Dates: start: 20180518

REACTIONS (5)
  - Clavicle fracture [Not Recovered/Not Resolved]
  - Musculoskeletal chest pain [Unknown]
  - Fall [Recovered/Resolved]
  - Blood pressure decreased [Unknown]
  - Osteopenia [Unknown]
